FAERS Safety Report 7544005-0 (Version None)
Quarter: 2011Q2

REPORT INFORMATION
  Report Type: 
  Country: None (occurrence: None)
  Receive Date: 20110613
  Receipt Date: 20050309
  Transmission Date: 20111010
  Serious: Yes (Death)
  Sender: FDA-Public Use
  Company Number: PHHO2005ES03964

PATIENT
  Age: 92 Year
  Sex: Male

DRUGS (5)
  1. DEXAMETHASONE [Concomitant]
  2. GABAPENTIN [Concomitant]
  3. ZOLEDRONIC ACID [Suspect]
     Dosage: 4 MG, QMO
     Dates: start: 20040524
  4. METAMIZOL [Concomitant]
  5. TRAMADOL HCL [Concomitant]

REACTIONS (1)
  - DEATH [None]
